FAERS Safety Report 7790082-1 (Version None)
Quarter: 2011Q3

REPORT INFORMATION
  Report Type: 
  Country: None (occurrence: None)
  Receive Date: 20110930
  Receipt Date: 20100312
  Transmission Date: 20111222
  Serious: No
  Sender: FDA-Public Use
  Company Number: US-ASTRAZENECA-2010SE10947

PATIENT
  Age: 70 Year
  Sex: Female
  Weight: 51.7 kg

DRUGS (3)
  1. AMLODIPINE BESYLATE [Concomitant]
     Indication: HYPERTENSION
  2. FOSAMAX [Concomitant]
  3. ARIMIDEX [Suspect]
     Indication: BREAST CANCER
     Route: 048
     Dates: start: 20091201

REACTIONS (4)
  - FATIGUE [None]
  - HOT FLUSH [None]
  - MYALGIA [None]
  - NAUSEA [None]
